FAERS Safety Report 15746598 (Version 1)
Quarter: 2018Q4

REPORT INFORMATION
  Report Type: Spontaneous
  Country: US (occurrence: US)
  Receive Date: 20181220
  Receipt Date: 20181220
  Transmission Date: 20190205
  Serious: No
  Sender: FDA-Public Use
  Company Number: US-PRINSTON PHARMACEUTICAL INC.-2018PRN00534

PATIENT
  Age: 55 Year
  Sex: Male
  Weight: 104.31 kg

DRUGS (4)
  1. VALSARTAN. [Suspect]
     Active Substance: VALSARTAN
     Indication: HYPERTENSION
     Dosage: 160 MG, 1X/DAY AT NIGHT
     Route: 048
     Dates: end: 20180720
  2. UNSPECIFIED VITAMINS [Concomitant]
     Active Substance: VITAMINS
  3. UNSPECIFIED ANTIDEPRESSANT [Concomitant]
     Dosage: UNK
     Dates: start: 201805
  4. UNSPECIFIED ANTIDEPRESSANT [Concomitant]
     Dosage: UNK
     Dates: end: 2017

REACTIONS (6)
  - Malaise [Recovered/Resolved]
  - Weight decreased [Recovered/Resolved]
  - Gastroenteritis viral [Recovered/Resolved]
  - Asthenia [Recovered/Resolved]
  - Diarrhoea [Recovered/Resolved]
  - Headache [Recovered/Resolved]

NARRATIVE: CASE EVENT DATE: 201806
